FAERS Safety Report 11072120 (Version 1)
Quarter: 2015Q2

REPORT INFORMATION
  Report Type: Report from Study
  Country: DK (occurrence: DK)
  Receive Date: 20150428
  Receipt Date: 20150428
  Transmission Date: 20150821
  Serious: Yes (Hospitalization)
  Sender: FDA-Public Use
  Company Number: DK-009507513-1301DNK000182

PATIENT
  Age: 12 Year
  Sex: Female
  Weight: 32.9 kg

DRUGS (11)
  1. TEMOZOLOMIDE. [Suspect]
     Active Substance: TEMOZOLOMIDE
     Indication: BRAIN NEOPLASM MALIGNANT
     Dosage: 80 MG, QD
     Route: 048
     Dates: start: 20120625, end: 20120701
  2. TEMOZOLOMIDE. [Suspect]
     Active Substance: TEMOZOLOMIDE
     Dosage: 175 MG, QD
     Route: 048
     Dates: start: 20120903, end: 20120907
  3. TEMOZOLOMIDE. [Suspect]
     Active Substance: TEMOZOLOMIDE
     Dosage: 85 MG, QD
     Route: 048
     Dates: start: 20120723, end: 20120729
  4. TEMOZOLOMIDE. [Suspect]
     Active Substance: TEMOZOLOMIDE
     Dosage: 230 MG, QD
     Route: 048
     Dates: start: 20130107, end: 20130111
  5. TEMOZOLOMIDE. [Suspect]
     Active Substance: TEMOZOLOMIDE
     Dosage: 85 MG, QD
     Route: 048
     Dates: start: 20120730, end: 20120803
  6. TEMOZOLOMIDE. [Suspect]
     Active Substance: TEMOZOLOMIDE
     Dosage: 230 MG, QD (CYCLE 4)
     Route: 048
     Dates: start: 20121208, end: 20121212
  7. TEMOZOLOMIDE. [Suspect]
     Active Substance: TEMOZOLOMIDE
     Dosage: 80 MG, QD
     Route: 048
     Dates: start: 20120702, end: 20120708
  8. TEMOZOLOMIDE. [Suspect]
     Active Substance: TEMOZOLOMIDE
     Dosage: 85 MG, QD
     Route: 048
     Dates: start: 20120709, end: 20120715
  9. TEMOZOLOMIDE. [Suspect]
     Active Substance: TEMOZOLOMIDE
     Dosage: 85 MG, QD
     Route: 048
     Dates: start: 20120716, end: 20120722
  10. TEMOZOLOMIDE. [Suspect]
     Active Substance: TEMOZOLOMIDE
     Dosage: 230 MG, QD
     Route: 048
     Dates: start: 20121105, end: 20121109
  11. SULFOTRIM [Concomitant]
     Indication: PROPHYLAXIS
     Dosage: UNK
     Dates: start: 20120625, end: 20130910

REACTIONS (1)
  - Herpes zoster [Recovered/Resolved]

NARRATIVE: CASE EVENT DATE: 20121202
